FAERS Safety Report 15353852 (Version 1)
Quarter: 2018Q3

REPORT INFORMATION
  Report Type: Spontaneous
  Country: US (occurrence: US)
  Receive Date: 20180830
  Receipt Date: 20180830
  Transmission Date: 20181010
  Serious: Yes (Hospitalization)
  Sender: FDA-Public Use
  Company Number: None

PATIENT
  Age: 38 Year
  Sex: Female

DRUGS (2)
  1. CAPECITABINE. [Suspect]
     Active Substance: CAPECITABINE
     Indication: NEOPLASM MALIGNANT
     Route: 048
     Dates: start: 20180622, end: 20180721
  2. TYKERB [Suspect]
     Active Substance: LAPATINIB DITOSYLATE
     Indication: DRUG THERAPY
     Route: 048
     Dates: start: 20180622, end: 20180722

REACTIONS (3)
  - Diarrhoea [None]
  - Skin irritation [None]
  - Vomiting [None]

NARRATIVE: CASE EVENT DATE: 20180620
